FAERS Safety Report 5624568-2 (Version None)
Quarter: 2008Q1

REPORT INFORMATION
  Report Type: 
  Country: None (occurrence: None)
  Receive Date: 20080213
  Receipt Date: 20080211
  Transmission Date: 20080703
  Serious: Yes (Hospitalization)
  Sender: FDA-Public Use
  Company Number: US-TEVA-167371USA

PATIENT
  Sex: Female

DRUGS (4)
  1. VERAPAMIL HCL ER TABLETS, 120 MG, 240MG [Suspect]
     Indication: MITRAL VALVE PROLAPSE
     Route: 048
     Dates: start: 20070101
  2. AZITHROMYCIN [Suspect]
     Indication: BRONCHITIS
     Dosage: ONLY TOOK 2 DOSES
     Route: 048
     Dates: start: 20080101, end: 20080101
  3. ATENOLOL [Concomitant]
     Indication: MITRAL VALVE PROLAPSE
  4. INHALERS (NOS) [Concomitant]

REACTIONS (10)
  - BRONCHITIS [None]
  - BURNING SENSATION [None]
  - CHEST PAIN [None]
  - DIARRHOEA [None]
  - DIZZINESS [None]
  - DRUG INTERACTION [None]
  - DYSPNOEA [None]
  - HIATUS HERNIA [None]
  - HYPERSENSITIVITY [None]
  - TREMOR [None]
